FAERS Safety Report 9234858 (Version 1)
Quarter: 2013Q2

REPORT INFORMATION
  Report Type: Spontaneous
  Country: DE (occurrence: DE)
  Receive Date: 20130416
  Receipt Date: 20130416
  Transmission Date: 20140414
  Serious: Yes (Death, Other)
  Sender: FDA-Public Use
  Company Number: DE-PFIZER INC-2013114003

PATIENT
  Age: 83 Year
  Sex: Female
  Weight: 60 kg

DRUGS (6)
  1. IBUPROFEN [Suspect]
     Indication: DIARRHOEA
     Dosage: UNK
     Route: 065
  2. FOSAMAX [Suspect]
     Dosage: UNK
     Route: 065
  3. FOSAVANCE [Suspect]
     Dosage: UNK
     Route: 065
  4. BONEFOS [Suspect]
     Indication: OSTEOPOROSIS
     Dosage: UNK
     Route: 048
     Dates: start: 20000701, end: 20060122
  5. TETANUS VACCINE [Suspect]
     Route: 065
  6. FLU VACCINE [Suspect]
     Dosage: UNK
     Route: 065

REACTIONS (13)
  - Off label use [Fatal]
  - Diarrhoea [Fatal]
  - Confusional state [Fatal]
  - Bronchitis [Fatal]
  - Osteonecrosis of jaw [Fatal]
  - Dyspnoea [Fatal]
  - Dysphagia [Fatal]
  - Non-cardiac chest pain [Fatal]
  - Fungal infection [Fatal]
  - Oesophageal discomfort [Fatal]
  - Ear pain [Fatal]
  - Renal cyst [Fatal]
  - Mucous stools [Fatal]
